FAERS Safety Report 8243760-4 (Version None)
Quarter: 2012Q1

REPORT INFORMATION
  Report Type: 
  Country: None (occurrence: None)
  Receive Date: 20120329
  Receipt Date: 20110815
  Transmission Date: 20120608
  Serious: No
  Sender: FDA-Public Use
  Company Number: US-MYLANLABS-2011S1017118

PATIENT
  Sex: Male

DRUGS (8)
  1. VITAMIN TAB [Concomitant]
  2. LISINOPRIL [Concomitant]
     Indication: BLOOD PRESSURE
  3. EMSAM [Suspect]
     Indication: DEPRESSION
     Dosage: CHANGED QD
     Route: 062
     Dates: start: 20110801, end: 20110812
  4. ZOCOR [Concomitant]
  5. TAMSULOSIN HCL [Concomitant]
     Indication: PROSTATOMEGALY
  6. FISH OIL [Concomitant]
  7. PLAVIX [Concomitant]
  8. METOPROLOL SUCCINATE [Concomitant]

REACTIONS (2)
  - BLOOD SODIUM DECREASED [None]
  - BALANCE DISORDER [None]
